FAERS Safety Report 4929503-8 (Version None)
Quarter: 2006Q1

REPORT INFORMATION
  Report Type: 
  Country: None (occurrence: None)
  Receive Date: 20060224
  Receipt Date: 20040107
  Transmission Date: 20060701
  Serious: Yes (Hospitalization)
  Sender: FDA-Public Use
  Company Number: 2004001382

PATIENT
  Age: 61 Year
  Sex: Male
  Weight: 72 kg

DRUGS (5)
  1. ATORVASTATIN CALCIUM [Suspect]
     Indication: MYOCARDIAL ISCHAEMIA
     Dosage: 1 IN 1 D, ORAL
     Route: 048
     Dates: start: 20030501, end: 20031118
  2. ISOSORBIDE MONONITRATE [Concomitant]
  3. MOLSIDOMINE [Concomitant]
  4. TRANDOLAPRIL [Concomitant]
  5. ACETYLSALICYLIC ACID SRT [Concomitant]

REACTIONS (6)
  - BACTERIA URINE IDENTIFIED [None]
  - CHEST PAIN [None]
  - ELECTROCARDIOGRAM Q WAVE ABNORMAL [None]
  - HEPATITIS [None]
  - HEPATOCELLULAR DAMAGE [None]
  - URINE ANALYSIS ABNORMAL [None]
